FAERS Safety Report 11106408 (Version 1)
Quarter: 2015Q2

REPORT INFORMATION
  Report Type: Spontaneous
  Country: GR (occurrence: GR)
  Receive Date: 20150512
  Receipt Date: 20150512
  Transmission Date: 20150821
  Serious: Yes (Hospitalization)
  Sender: FDA-Public Use
  Company Number: GR-BAYER-2015-204008

PATIENT
  Sex: Female

DRUGS (3)
  1. AERIUS [Concomitant]
     Active Substance: DESLORATADINE
     Dosage: UNK
     Dates: start: 201503
  2. AVELOX [Suspect]
     Active Substance: MOXIFLOXACIN HYDROCHLORIDE
     Indication: ACUTE SINUSITIS
     Dosage: 400 MG, QD
     Route: 048
     Dates: start: 20150506, end: 20150507
  3. FLIXOTIDE [Concomitant]
     Active Substance: FLUTICASONE PROPIONATE

REACTIONS (3)
  - Oedema peripheral [None]
  - Axillary pain [None]
  - Rash generalised [None]

NARRATIVE: CASE EVENT DATE: 20150508
